FAERS Safety Report 12417084 (Version 1)
Quarter: 2016Q2

REPORT INFORMATION
  Report Type: Spontaneous
  Country: BR (occurrence: BR)
  Receive Date: 20160530
  Receipt Date: 20160530
  Transmission Date: 20160815
  Serious: Yes (Other)
  Sender: FDA-Public Use
  Company Number: BR-JNJFOC-20150602809

PATIENT
  Age: 47 Year
  Sex: Female

DRUGS (2)
  1. AKINETON [Concomitant]
     Active Substance: BIPERIDEN HYDROCHLORIDE
     Indication: DEPRESSION
     Dosage: 0.5 (UNITS UNSPECIFIED)
     Route: 065
     Dates: start: 20150531
  2. HALDOL [Suspect]
     Active Substance: HALOPERIDOL
     Indication: DEPRESSION
     Dosage: DOSAGE 0.5 (UNITS UNSPECIFIED)
     Route: 065
     Dates: start: 20150531

REACTIONS (4)
  - Muscular weakness [Recovering/Resolving]
  - Off label use [Not Recovered/Not Resolved]
  - Abasia [Recovering/Resolving]
  - Malaise [Recovering/Resolving]

NARRATIVE: CASE EVENT DATE: 20150531
